FAERS Safety Report 5725000-0 (Version None)
Quarter: 2008Q2

REPORT INFORMATION
  Report Type: 
  Country: None (occurrence: None)
  Receive Date: 20080430
  Receipt Date: 20080430
  Transmission Date: 20081010
  Serious: Yes (Other)
  Sender: FDA-Public Use
  Company Number: None

PATIENT
  Age: 12 Year
  Sex: Female
  Weight: 47.6277 kg

DRUGS (2)
  1. SINGULAIR [Suspect]
     Indication: SEASONAL ALLERGY
     Dosage: 5MG ONCE DAILY PO
     Route: 048
     Dates: start: 20080301, end: 20080409
  2. ZYRTEC [Concomitant]

REACTIONS (8)
  - AGITATION [None]
  - DIARRHOEA [None]
  - FATIGUE [None]
  - FEAR [None]
  - NERVOUS SYSTEM DISORDER [None]
  - SELF-INJURIOUS IDEATION [None]
  - SUICIDAL IDEATION [None]
  - VOMITING [None]
